FAERS Safety Report 17195729 (Version 1)
Quarter: 2020Q1

REPORT INFORMATION
  Report Type: Spontaneous
  Country: US (occurrence: US)
  Receive Date: 20191223
  Receipt Date: 20191223
  Transmission Date: 20200409
  Serious: Yes (Life-Threatening, Disabling, Other)
  Sender: FDA-Public Use
  Company Number: None

PATIENT
  Age: 56 Year
  Sex: Male
  Weight: 71.1 kg

DRUGS (5)
  1. TAGRISSO [Concomitant]
     Active Substance: OSIMERTINIB
  2. LORAZEPAM. [Concomitant]
     Active Substance: LORAZEPAM
  3. ADVIL [Concomitant]
     Active Substance: IBUPROFEN
  4. GABAPENTIN. [Suspect]
     Active Substance: GABAPENTIN
     Indication: NEURALGIA
     Dosage: ?          QUANTITY:173 CAPSULE(S);?
     Route: 048
  5. ALEVE [Concomitant]
     Active Substance: NAPROXEN SODIUM

REACTIONS (2)
  - Dyspnoea [None]
  - Speech disorder [None]

NARRATIVE: CASE EVENT DATE: 20191104
